FAERS Safety Report 4291644-9 (Version None)
Quarter: 2004Q1

REPORT INFORMATION
  Report Type: 
  Country: None (occurrence: None)
  Receive Date: 20040211
  Receipt Date: 20031107
  Transmission Date: 20041129
  Serious: No
  Sender: FDA-Public Use
  Company Number: US-GLAXOSMITHKLINE-A0438830A

PATIENT
  Sex: Male

DRUGS (1)
  1. IMITREX [Suspect]
     Indication: MIGRAINE
     Dosage: 1INJ THREE TIMES PER DAY
     Route: 058
     Dates: start: 20031106

REACTIONS (3)
  - DRUG INEFFECTIVE [None]
  - INJECTION SITE BURNING [None]
  - PHARMACEUTICAL PRODUCT COMPLAINT [None]
